FAERS Safety Report 13439997 (Version 1)
Quarter: 2017Q2

REPORT INFORMATION
  Report Type: Spontaneous
  Country: US (occurrence: US)
  Receive Date: 20170413
  Receipt Date: 20170413
  Transmission Date: 20170830
  Serious: Yes (Other)
  Sender: FDA-Public Use
  Company Number: US-JNJFOC-20170405850

PATIENT

DRUGS (2)
  1. LOPERAMIDE [Suspect]
     Active Substance: LOPERAMIDE
     Route: 065
  2. LOPERAMIDE [Suspect]
     Active Substance: LOPERAMIDE
     Indication: PRODUCT USED FOR UNKNOWN INDICATION
     Route: 065

REACTIONS (31)
  - Bradycardia [Unknown]
  - Nausea [Unknown]
  - Urticaria [Unknown]
  - Irritability [Unknown]
  - Ileus [Unknown]
  - Throat irritation [Unknown]
  - Medication error [Unknown]
  - Intentional product misuse [Unknown]
  - Periorbital oedema [Unknown]
  - Gastrointestinal sounds abnormal [Unknown]
  - Abdominal discomfort [Unknown]
  - Abdominal pain [Unknown]
  - Constipation [Unknown]
  - Rash [Unknown]
  - Pharyngeal oedema [Unknown]
  - Cough [Unknown]
  - Feeling cold [Unknown]
  - Ataxia [Unknown]
  - Lethargy [Unknown]
  - Flushing [Unknown]
  - Hypotonia [Unknown]
  - Dizziness [Unknown]
  - Vomiting [Unknown]
  - Dry mouth [Unknown]
  - Tachycardia [Unknown]
  - Hyperhidrosis [Unknown]
  - Chest pain [Unknown]
  - Somnolence [Unknown]
  - Headache [Unknown]
  - Psychomotor hyperactivity [Unknown]
  - Dyspnoea [Unknown]
